FAERS Safety Report 9660466 (Version 2)
Quarter: 2013Q4

REPORT INFORMATION
  Report Type: Spontaneous
  Country: JP (occurrence: JP)
  Receive Date: 20131031
  Receipt Date: 20131213
  Transmission Date: 20140711
  Serious: Yes (Life-Threatening, Other)
  Sender: FDA-Public Use
  Company Number: JP-TAKEDA-2013TJP002283

PATIENT
  Age: 75 Year
  Sex: Female
  Weight: 33 kg

DRUGS (13)
  1. TAKEPRON INTRAVENOUS 30MG. [Suspect]
     Indication: UPPER GASTROINTESTINAL HAEMORRHAGE
     Dosage: 30 MG, QD
     Route: 042
     Dates: start: 20131024, end: 20131025
  2. GAMOFA D [Suspect]
     Indication: UPPER GASTROINTESTINAL HAEMORRHAGE
     Dosage: 20 MG, QD
     Route: 042
     Dates: start: 20131024, end: 20131024
  3. OMNIPAQUE 350 MGI/ML [Suspect]
     Indication: SCAN WITH CONTRAST
     Dosage: 100 ML, QD
     Route: 042
     Dates: start: 20131024, end: 20131024
  4. THEODUR [Concomitant]
     Indication: CHRONIC OBSTRUCTIVE PULMONARY DISEASE
     Dosage: 100 MG, BID
     Route: 048
  5. KLARICID [Concomitant]
     Indication: CHRONIC OBSTRUCTIVE PULMONARY DISEASE
     Dosage: 200 MG, BID
     Route: 048
  6. LASIX                              /00032601/ [Concomitant]
     Indication: CARDIAC FAILURE CHRONIC
     Dosage: 20 MG, QD
     Route: 048
     Dates: end: 20131024
  7. ALDACTONE                          /00006201/ [Concomitant]
     Indication: CARDIAC FAILURE CHRONIC
     Dosage: 25 MG, QD
     Route: 048
     Dates: end: 20131024
  8. MUCOSOLVAN [Concomitant]
     Indication: CHRONIC OBSTRUCTIVE PULMONARY DISEASE
     Dosage: 45 MG, QD
     Route: 048
  9. PL [Concomitant]
     Indication: NASOPHARYNGITIS
     Dosage: 1 G, TID
     Route: 048
     Dates: start: 20131023, end: 20131024
  10. CALONAL [Concomitant]
     Indication: NASOPHARYNGITIS
     Dosage: 200 MG, TID
     Route: 048
     Dates: start: 20131023, end: 20131024
  11. MUCODYNE [Concomitant]
     Indication: CHRONIC OBSTRUCTIVE PULMONARY DISEASE
     Dosage: 500 MG, TID
     Route: 048
  12. PREDOPA [Concomitant]
     Dosage: UNK
     Route: 042
     Dates: start: 20131024, end: 20131103
  13. TRANSAMIN [Concomitant]
     Indication: NASOPHARYNGITIS
     Dosage: 250 MG, TID
     Route: 048
     Dates: start: 20131023, end: 20131024

REACTIONS (1)
  - Hepatitis fulminant [Recovering/Resolving]
